FAERS Safety Report 19861048 (Version 2)
Quarter: 2021Q4

REPORT INFORMATION
  Report Type: Spontaneous
  Country: US (occurrence: US)
  Receive Date: 20210920
  Receipt Date: 20211004
  Transmission Date: 20220303
  Serious: Yes (Other)
  Sender: FDA-Public Use
  Company Number: US-MLMSERVICE-20210831-3079020-1

PATIENT
  Age: 41 Year
  Sex: Female
  Weight: 161 kg

DRUGS (3)
  1. PIPERACILLIN SODIUM\TAZOBACTAM SODIUM [Interacting]
     Active Substance: PIPERACILLIN SODIUM\TAZOBACTAM SODIUM
     Indication: Panniculitis
     Dosage: UNK
  2. VANCOMYCIN HYDROCHLORIDE [Interacting]
     Active Substance: VANCOMYCIN HYDROCHLORIDE
     Indication: Panniculitis
     Dosage: 2 G (LOADING DOSE)
  3. VANCOMYCIN HYDROCHLORIDE [Interacting]
     Active Substance: VANCOMYCIN HYDROCHLORIDE
     Dosage: 1.75 G, 3X/DAY (EVERY 8 HOURS, MAINTENANCE DOSE)

REACTIONS (4)
  - Drug interaction [Recovering/Resolving]
  - Drug level above therapeutic [Recovering/Resolving]
  - Acute kidney injury [Recovering/Resolving]
  - Off label use [Unknown]
